FAERS Safety Report 6378693-1 (Version None)
Quarter: 2009Q3

REPORT INFORMATION
  Report Type: 
  Country: None (occurrence: None)
  Receive Date: 20090923
  Receipt Date: 20090910
  Transmission Date: 20100115
  Serious: Yes (Death, Hospitalization)
  Sender: FDA-Public Use
  Company Number: 2009AL000851

PATIENT
  Age: 80 Year
  Sex: Female

DRUGS (14)
  1. DIGOXIN [Suspect]
     Dosage: 0.125 MG, MWF, PO
     Route: 048
     Dates: start: 20060101
  2. EFFEXOR [Concomitant]
  3. REVATIO [Concomitant]
  4. PEPCID [Concomitant]
  5. ASPIRIN [Concomitant]
  6. LASIX [Concomitant]
  7. ENABLEX [Concomitant]
  8. VERSED [Concomitant]
  9. FENTANYL-100 [Concomitant]
  10. ATACAND [Concomitant]
  11. CRESTOR [Concomitant]
  12. ATACAND [Concomitant]
  13. ACIPHEX [Concomitant]
  14. METOCLOPRAMIDE [Concomitant]

REACTIONS (27)
  - ATRIOVENTRICULAR BLOCK FIRST DEGREE [None]
  - CARDIAC FLUTTER [None]
  - CARDIAC MURMUR [None]
  - CARDIAC OUTPUT DECREASED [None]
  - CHEST PAIN [None]
  - COLONIC POLYP [None]
  - DIVERTICULITIS [None]
  - DYSPHAGIA [None]
  - ECONOMIC PROBLEM [None]
  - EMOTIONAL DISORDER [None]
  - FALL [None]
  - FAMILY STRESS [None]
  - FATIGUE [None]
  - GASTRITIS [None]
  - GASTROOESOPHAGEAL REFLUX DISEASE [None]
  - HIATUS HERNIA [None]
  - INJURY [None]
  - JOINT SWELLING [None]
  - MITRAL VALVE PROLAPSE [None]
  - NAUSEA [None]
  - OESOPHAGITIS [None]
  - PAIN [None]
  - SOCIAL PROBLEM [None]
  - SYNCOPE [None]
  - VASCULAR RESISTANCE SYSTEMIC [None]
  - VOMITING [None]
  - WEIGHT DECREASED [None]
